FAERS Safety Report 6056844-6 (Version None)
Quarter: 2009Q1

REPORT INFORMATION
  Report Type: 
  Country: None (occurrence: None)
  Receive Date: 20090129
  Receipt Date: 20051121
  Transmission Date: 20090719
  Serious: Yes (Death, Life-Threatening, Hospitalization, Disabling)
  Sender: FDA-Public Use
  Company Number: FR-PFIZER INC-2008157488

PATIENT

DRUGS (4)
  1. IRINOTECAN HCL [Suspect]
     Indication: GASTRIC CANCER
     Dosage: UNK
     Dates: end: 20051108
  2. FLUOROURACIL [Suspect]
     Indication: GASTRIC CANCER
     Dates: end: 20051108
  3. FOLINIC ACID [Suspect]
     Indication: GASTRIC CANCER
     Dates: end: 20051108
  4. MORPHINE SULFATE [Concomitant]

REACTIONS (1)
  - GASTROINTESTINAL HAEMORRHAGE [None]
